FAERS Safety Report 20373670 (Version 1)
Quarter: 2022Q1

REPORT INFORMATION
  Report Type: Spontaneous
  Country: JP (occurrence: JP)
  Receive Date: 20220125
  Receipt Date: 20220125
  Transmission Date: 20220423
  Serious: Yes (Other)
  Sender: FDA-Public Use
  Company Number: JP-CHUGAI-2021034754AA

PATIENT
  Age: 86 Year
  Sex: Female
  Weight: 66 kg

DRUGS (5)
  1. TECENTRIQ [Suspect]
     Active Substance: ATEZOLIZUMAB
     Indication: Hepatocellular carcinoma
     Route: 041
     Dates: start: 20210115
  2. TECENTRIQ [Suspect]
     Active Substance: ATEZOLIZUMAB
     Route: 041
     Dates: start: 20210709
  3. AVASTIN [Suspect]
     Active Substance: BEVACIZUMAB
     Indication: Hepatocellular carcinoma
     Dosage: 740 MILLIGRAM
     Route: 041
     Dates: start: 20210115
  4. AVASTIN [Suspect]
     Active Substance: BEVACIZUMAB
     Dosage: 740 MILLIGRAM
     Route: 041
     Dates: start: 20210507
  5. EURAX [Concomitant]
     Active Substance: CROTAMITON
     Route: 003

REACTIONS (3)
  - Hypothyroidism [Recovering/Resolving]
  - Hyperthyroidism [Recovered/Resolved]
  - Oedema peripheral [Recovered/Resolved]

NARRATIVE: CASE EVENT DATE: 20210226
